FAERS Safety Report 19697223 (Version 3)
Quarter: 2022Q1

REPORT INFORMATION
  Report Type: Spontaneous
  Country: US (occurrence: US)
  Receive Date: 20210813
  Receipt Date: 20220112
  Transmission Date: 20220424
  Serious: Yes (Other)
  Sender: FDA-Public Use
  Company Number: US-GSKCCFUS-CASE-01133488_AE-66727

PATIENT
  Age: 90 Year
  Sex: Female

DRUGS (1)
  1. TRELEGY ELLIPTA [Suspect]
     Active Substance: FLUTICASONE FUROATE\UMECLIDINIUM BROMIDE\VILANTEROL TRIFENATATE
     Indication: Asthma
     Dosage: 200 ?G, 1D  200/62.5/25 MCG
     Route: 055
     Dates: start: 20210727

REACTIONS (14)
  - Pneumonia [Unknown]
  - Lip blister [Recovering/Resolving]
  - Constipation [Recovered/Resolved]
  - Dizziness [Recovered/Resolved]
  - Arthralgia [Not Recovered/Not Resolved]
  - Eye pain [Not Recovered/Not Resolved]
  - Cough [Recovering/Resolving]
  - Dyspnoea [Recovering/Resolving]
  - Bronchitis [Unknown]
  - Condition aggravated [Recovering/Resolving]
  - Lower respiratory tract congestion [Unknown]
  - Increased viscosity of upper respiratory secretion [Recovering/Resolving]
  - Drug ineffective [Unknown]
  - Secretion discharge [Recovering/Resolving]

NARRATIVE: CASE EVENT DATE: 20210807
